FAERS Safety Report 16775693 (Version 2)
Quarter: 2019Q3

REPORT INFORMATION
  Report Type: Spontaneous
  Country: JP (occurrence: JP)
  Receive Date: 20190905
  Receipt Date: 20190919
  Transmission Date: 20191005
  Serious: Yes (Other)
  Sender: FDA-Public Use
  Company Number: JP-PFIZER INC-2019375629

PATIENT

DRUGS (2)
  1. REVATIO [Suspect]
     Active Substance: SILDENAFIL CITRATE
     Indication: PULMONARY HYPERTENSION
     Dosage: UNK
  2. MACITENTAN [Concomitant]
     Active Substance: MACITENTAN
     Dosage: UNK

REACTIONS (2)
  - Ascites [Unknown]
  - Portal vein pressure increased [Unknown]
